FAERS Safety Report 4662386-2 (Version None)
Quarter: 2005Q2

REPORT INFORMATION
  Report Type: 
  Country: None (occurrence: None)
  Receive Date: 20050512
  Receipt Date: 20050429
  Transmission Date: 20051028
  Serious: Yes (Other)
  Sender: FDA-Public Use
  Company Number: 2005060706

PATIENT
  Age: 28 Year
  Sex: Female

DRUGS (4)
  1. ZELDOX (CAPSULES) (ZIPRASIDONE) [Suspect]
     Indication: SCHIZOPHRENIA
     Dosage: 80 MG (80 MG, 1 IN 1 D), ORAL
     Route: 048
     Dates: end: 20050101
  2. LITHIUM CARBONATE [Concomitant]
  3. LAMICTAL [Concomitant]
  4. PROPANOLOL (PROPANOLOL) [Concomitant]

REACTIONS (5)
  - ANXIETY [None]
  - ARRHYTHMIA SUPRAVENTRICULAR [None]
  - BRADYCARDIA [None]
  - FATIGUE [None]
  - HYPOTENSION [None]
